FAERS Safety Report 12333156 (Version 1)
Quarter: 2016Q2

REPORT INFORMATION
  Report Type: Spontaneous
  Country: US (occurrence: US)
  Receive Date: 20160504
  Receipt Date: 20160504
  Transmission Date: 20160815
  Serious: No
  Sender: FDA-Public Use
  Company Number: US-ROCHE-1671964

PATIENT
  Age: 71 Year
  Sex: Male

DRUGS (1)
  1. ESBRIET [Suspect]
     Active Substance: PIRFENIDONE
     Indication: IDIOPATHIC PULMONARY FIBROSIS
     Route: 048
     Dates: start: 20151001

REACTIONS (6)
  - Dyspepsia [Unknown]
  - Oral discharge [Unknown]
  - Dyspnoea [Unknown]
  - Abdominal pain upper [Unknown]
  - Eructation [Unknown]
  - Dizziness [Unknown]

NARRATIVE: CASE EVENT DATE: 20151029
